FAERS Safety Report 25058168 (Version 1)
Quarter: 2025Q1

REPORT INFORMATION
  Report Type: Spontaneous
  Country: IT (occurrence: IT)
  Receive Date: 20250310
  Receipt Date: 20250310
  Transmission Date: 20250408
  Serious: Yes (Hospitalization, Other)
  Sender: CHEPLAPHARM
  Company Number: IT-CHEPLA-2025002992

PATIENT
  Age: 73 Year
  Sex: Female

DRUGS (32)
  1. PACLITAXEL [Suspect]
     Active Substance: PACLITAXEL
     Indication: Triple negative breast cancer
     Dates: start: 202103, end: 202106
  2. CAPECITABINE [Suspect]
     Active Substance: CAPECITABINE
     Indication: Triple negative breast cancer
     Dosage: REDUCED DOSE/1500 MG/MQ/DAY X 14 DAYS ??DAILY DOSE: 1500 MILLIGRAM/M?
     Dates: start: 202310
  3. CARBOPLATIN [Suspect]
     Active Substance: CARBOPLATIN
     Indication: Triple negative breast cancer
     Dates: start: 202103, end: 202106
  4. DOCETAXEL [Suspect]
     Active Substance: DOCETAXEL
     Indication: Triple negative breast cancer
  5. DOCETAXEL [Suspect]
     Active Substance: DOCETAXEL
     Indication: Paraesthesia
  6. CYCLOPHOSPHAMIDE [Suspect]
     Active Substance: CYCLOPHOSPHAMIDE
     Indication: Triple negative breast cancer
     Dates: start: 201610
  7. CYCLOPHOSPHAMIDE [Suspect]
     Active Substance: CYCLOPHOSPHAMIDE
     Indication: Paraesthesia
     Dates: start: 201610
  8. SACITUZUMAB GOVITECAN [Suspect]
     Active Substance: SACITUZUMAB GOVITECAN
     Indication: Vomiting
     Dates: start: 202210
  9. SACITUZUMAB GOVITECAN [Suspect]
     Active Substance: SACITUZUMAB GOVITECAN
     Indication: Abdominal pain
     Dates: start: 202210
  10. SACITUZUMAB GOVITECAN [Suspect]
     Active Substance: SACITUZUMAB GOVITECAN
     Indication: Triple negative breast cancer
     Dates: start: 202210
  11. SACITUZUMAB GOVITECAN [Suspect]
     Active Substance: SACITUZUMAB GOVITECAN
     Indication: Neutropenia
     Dates: start: 202210
  12. SACITUZUMAB GOVITECAN [Suspect]
     Active Substance: SACITUZUMAB GOVITECAN
     Indication: Nausea
     Dates: start: 202210
  13. SACITUZUMAB GOVITECAN [Suspect]
     Active Substance: SACITUZUMAB GOVITECAN
     Indication: Diarrhoea
     Dates: start: 202210
  14. SACITUZUMAB GOVITECAN [Suspect]
     Active Substance: SACITUZUMAB GOVITECAN
     Indication: Vomiting
     Dates: start: 202304
  15. SACITUZUMAB GOVITECAN [Suspect]
     Active Substance: SACITUZUMAB GOVITECAN
     Indication: Abdominal pain
     Dates: start: 202304
  16. SACITUZUMAB GOVITECAN [Suspect]
     Active Substance: SACITUZUMAB GOVITECAN
     Indication: Triple negative breast cancer
     Dates: start: 202304
  17. SACITUZUMAB GOVITECAN [Suspect]
     Active Substance: SACITUZUMAB GOVITECAN
     Indication: Neutropenia
     Dates: start: 202304
  18. SACITUZUMAB GOVITECAN [Suspect]
     Active Substance: SACITUZUMAB GOVITECAN
     Indication: Nausea
     Dates: start: 202304
  19. SACITUZUMAB GOVITECAN [Suspect]
     Active Substance: SACITUZUMAB GOVITECAN
     Indication: Diarrhoea
     Dates: start: 202304
  20. ERIBULIN [Suspect]
     Active Substance: ERIBULIN
     Indication: Triple negative breast cancer
  21. ERIBULIN [Suspect]
     Active Substance: ERIBULIN
     Indication: Mucosal inflammation
  22. VINORELBINE [Suspect]
     Active Substance: VINORELBINE TARTRATE
     Indication: Triple negative breast cancer
     Dates: start: 202310
  23. RAMIPRIL [Concomitant]
     Active Substance: RAMIPRIL
     Indication: Acute myocardial infarction
  24. RAMIPRIL [Concomitant]
     Active Substance: RAMIPRIL
     Indication: Drug ineffective
  25. RAMIPRIL [Concomitant]
     Active Substance: RAMIPRIL
     Indication: Hypertension
  26. ROSUVASTATIN [Concomitant]
     Active Substance: ROSUVASTATIN
     Indication: Dyslipidaemia
  27. ROSUVASTATIN [Concomitant]
     Active Substance: ROSUVASTATIN
     Indication: Drug ineffective
  28. CLOPIDOGREL [Concomitant]
     Active Substance: CLOPIDOGREL BISULFATE
     Indication: Acute myocardial infarction
  29. CLOPIDOGREL [Concomitant]
     Active Substance: CLOPIDOGREL BISULFATE
     Indication: Drug ineffective
  30. PANTOPRAZOLE [Concomitant]
     Active Substance: PANTOPRAZOLE
     Indication: Hypertension
  31. PANTOPRAZOLE [Concomitant]
     Active Substance: PANTOPRAZOLE
     Indication: Acute myocardial infarction
  32. GRANULOCYTE COLONY-STIMULATING FACTOR NOS [Concomitant]
     Active Substance: GRANULOCYTE COLONY-STIMULATING FACTOR NOS
     Indication: Prophylaxis
     Dates: start: 201610, end: 201701

REACTIONS (3)
  - Neutropenia [Unknown]
  - Ischaemic stroke [Recovering/Resolving]
  - Diarrhoea [Unknown]

NARRATIVE: CASE EVENT DATE: 20240201
